FAERS Safety Report 18104131 (Version 1)
Quarter: 2020Q3

REPORT INFORMATION
  Report Type: Spontaneous
  Country: US (occurrence: US)
  Receive Date: 20200801
  Receipt Date: 20200801
  Transmission Date: 20201103
  Serious: No
  Sender: FDA-Public Use
  Company Number: None

PATIENT
  Age: 70 Year
  Sex: Male
  Weight: 112 kg

DRUGS (3)
  1. AMPICILLIN [Concomitant]
     Active Substance: AMPICILLIN
     Dates: start: 20200513, end: 20200605
  2. VANCOMYCIN [Suspect]
     Active Substance: VANCOMYCIN
     Indication: ENTEROCOCCAL BACTERAEMIA
     Route: 042
     Dates: start: 20200603, end: 20200613
  3. CEFTRIAXONE. [Concomitant]
     Active Substance: CEFTRIAXONE
     Dates: start: 20200513, end: 20200603

REACTIONS (6)
  - Hypotension [None]
  - Rash erythematous [None]
  - Toxic shock syndrome [None]
  - Acute kidney injury [None]
  - Eczema [None]
  - Drug eruption [None]

NARRATIVE: CASE EVENT DATE: 20200609
